FAERS Safety Report 5469267-5 (Version None)
Quarter: 2007Q3

REPORT INFORMATION
  Report Type: 
  Country: None (occurrence: None)
  Receive Date: 20070927
  Receipt Date: 20070920
  Transmission Date: 20080115
  Serious: Yes (Hospitalization)
  Sender: FDA-Public Use
  Company Number: PHHO2006ES18019

PATIENT
  Age: 46 Year
  Sex: Male
  Weight: 67 kg

DRUGS (4)
  1. CERTICAN [Suspect]
     Indication: RENAL TRANSPLANT
     Dosage: 2.5MG DAILY
     Route: 048
     Dates: start: 20060606, end: 20060816
  2. URBASON [Suspect]
  3. NEORAL [Suspect]
     Indication: RENAL TRANSPLANT
  4. STEROIDS NOS [Suspect]

REACTIONS (5)
  - DISEASE PROGRESSION [None]
  - ENTEROCOCCAL INFECTION [None]
  - PYREXIA [None]
  - RENAL IMPAIRMENT [None]
  - UROSEPSIS [None]
